FAERS Safety Report 21885259 (Version 1)
Quarter: 2023Q1

REPORT INFORMATION
  Report Type: Report from Study
  Country: BR (occurrence: BR)
  Receive Date: 20230119
  Receipt Date: 20230119
  Transmission Date: 20230418
  Serious: Yes (Other)
  Sender: FDA-Public Use
  Company Number: BR-JNJFOC-20220841568

PATIENT
  Age: 23 Year
  Sex: Female
  Weight: 72 kg

DRUGS (3)
  1. INFLIXIMAB [Suspect]
     Active Substance: INFLIXIMAB
     Indication: Psoriatic arthropathy
     Dosage: 5 VIALS
     Route: 041
  2. INFLIXIMAB [Suspect]
     Active Substance: INFLIXIMAB
     Dosage: 5 VIALS
     Route: 041
  3. REMICADE [Suspect]
     Active Substance: INFLIXIMAB
     Indication: Psoriatic arthropathy
     Route: 041
     Dates: start: 20191109

REACTIONS (5)
  - Cataract [Not Recovered/Not Resolved]
  - Blindness unilateral [Not Recovered/Not Resolved]
  - COVID-19 [Unknown]
  - Inflammation [Unknown]
  - Off label use [Unknown]
